FAERS Safety Report 21509872 (Version 1)
Quarter: 2022Q4

REPORT INFORMATION
  Report Type: Spontaneous
  Country: ES (occurrence: ES)
  Receive Date: 20221026
  Receipt Date: 20221026
  Transmission Date: 20230112
  Serious: No
  Sender: FDA-Public Use
  Company Number: ES-JAZZ-2022-ES-024311

PATIENT
  Sex: Male
  Weight: 42 kg

DRUGS (1)
  1. DEFIBROTIDE SODIUM [Suspect]
     Active Substance: DEFIBROTIDE SODIUM
     Indication: Prophylaxis
     Dosage: UNK

REACTIONS (1)
  - Off label use [Unknown]
